FAERS Safety Report 13011309 (Version 1)
Quarter: 2016Q4

REPORT INFORMATION
  Report Type: Other
  Country: ES (occurrence: ES)
  Receive Date: 20161209
  Receipt Date: 20161209
  Transmission Date: 20170207
  Serious: Yes (Other)
  Sender: FDA-Public Use
  Company Number: ES-LUPIN PHARMACEUTICALS INC.-2016-04416

PATIENT
  Age: 43 Year
  Sex: Female

DRUGS (1)
  1. OMEPRAZOLE. [Suspect]
     Active Substance: OMEPRAZOLE
     Indication: HELICOBACTER GASTRITIS
     Dosage: 40 MG
     Route: 065

REACTIONS (1)
  - Drug hypersensitivity [Unknown]
